FAERS Safety Report 6390698-3 (Version None)
Quarter: 2009Q4

REPORT INFORMATION
  Report Type: 
  Country: None (occurrence: None)
  Receive Date: 20091006
  Receipt Date: 20091001
  Transmission Date: 20100525
  Serious: Yes (Death)
  Sender: FDA-Public Use
  Company Number: CA-ABBOTT-09P-028-0600648-00

PATIENT
  Sex: Male
  Weight: 65.83 kg

DRUGS (3)
  1. LUPRON DEPOT [Suspect]
     Indication: PROSTATE CANCER
     Dates: start: 20030424, end: 20090409
  2. CASODEX [Concomitant]
     Indication: DRUG USE FOR UNKNOWN INDICATION
  3. NORVASC [Concomitant]
     Indication: DRUG USE FOR UNKNOWN INDICATION

REACTIONS (1)
  - DEATH [None]
